FAERS Safety Report 10742325 (Version 1)
Quarter: 2015Q1

REPORT INFORMATION
  Report Type: Spontaneous
  Country: US (occurrence: None)
  Receive Date: 20150123
  Receipt Date: 20150123
  Transmission Date: 20150721
  Serious: Yes (Life-Threatening, Hospitalization)
  Sender: FDA-Public Use
  Company Number: None

PATIENT
  Age: 59 Year
  Sex: Male
  Weight: 98.43 kg

DRUGS (11)
  1. ROPINEROLE [Concomitant]
     Active Substance: ROPINIROLE
  2. CPAP [Concomitant]
     Active Substance: DEVICE
  3. TESTOSTERONE GEL [Suspect]
     Active Substance: TESTOSTERONE
     Indication: BLOOD TESTOSTERONE DECREASED
     Route: 061
     Dates: start: 20120716
  4. POTASSIUM [Concomitant]
     Active Substance: POTASSIUM
  5. NAPROXEN. [Concomitant]
     Active Substance: NAPROXEN
  6. ASPIRIN. [Concomitant]
     Active Substance: ASPIRIN
  7. CYCLOBENZAPRINE [Concomitant]
     Active Substance: CYCLOBENZAPRINE
  8. DULOXETINE [Concomitant]
     Active Substance: DULOXETINE
  9. AMLODIPINE [Concomitant]
     Active Substance: AMLODIPINE BESYLATE
  10. VITAMINS [Concomitant]
     Active Substance: VITAMINS
  11. NEXIUM [Concomitant]
     Active Substance: ESOMEPRAZOLE MAGNESIUM

REACTIONS (1)
  - Cerebrovascular accident [None]

NARRATIVE: CASE EVENT DATE: 20141112
